FAERS Safety Report 5950364-2 (Version None)
Quarter: 2008Q4

REPORT INFORMATION
  Report Type: 
  Country: None (occurrence: None)
  Receive Date: 20081112
  Receipt Date: 20081105
  Transmission Date: 20090506
  Serious: Yes (Hospitalization, Other)
  Sender: FDA-Public Use
  Company Number: PHEH2008US09995

PATIENT
  Sex: Female
  Weight: 63.946 kg

DRUGS (12)
  1. EXELON [Suspect]
     Indication: DEMENTIA ALZHEIMER'S TYPE
     Dosage: 4.6 MG QD
     Route: 062
     Dates: start: 20080401, end: 20080924
  2. VASODILAN [Concomitant]
  3. LIBRIUM [Concomitant]
  4. ASPIRIN [Concomitant]
  5. INDERAL [Concomitant]
  6. ARICEPT [Concomitant]
  7. COLACE [Concomitant]
  8. THYROID TAB [Concomitant]
  9. FOLIC ACID [Concomitant]
  10. TRAZODONE HCL [Concomitant]
  11. AVAPRO [Concomitant]
  12. MEVACOR [Concomitant]

REACTIONS (7)
  - ANAEMIA [None]
  - BLOOD CREATININE INCREASED [None]
  - BLOOD UREA INCREASED [None]
  - COLONIC POLYP [None]
  - HAEMOGLOBIN INCREASED [None]
  - POLYPECTOMY [None]
  - RENAL FAILURE ACUTE [None]
